FAERS Safety Report 8022683-X (Version None)
Quarter: 2012Q1

REPORT INFORMATION
  Report Type: 
  Country: None (occurrence: None)
  Receive Date: 20120104
  Receipt Date: 20111227
  Transmission Date: 20120608
  Serious: Yes (Other)
  Sender: FDA-Public Use
  Company Number: JP-ABBOTT-11P-087-0886819-00

PATIENT
  Sex: Female

DRUGS (26)
  1. METHOTREXATE [Concomitant]
     Dates: start: 20110806, end: 20111014
  2. METHOTREXATE [Concomitant]
     Dates: start: 20111015, end: 20111216
  3. LEUCOVORIN CALCIUM [Concomitant]
     Indication: PROPHYLAXIS
     Route: 048
     Dates: start: 20110806
  4. FUROSEMIDE [Concomitant]
     Indication: PRODUCT USED FOR UNKNOWN INDICATION
     Dosage: DAILY DOSE: 20MG
     Route: 048
     Dates: start: 20111014
  5. HUMIRA [Suspect]
     Dates: start: 20100803, end: 20101108
  6. METHOTREXATE [Concomitant]
     Dates: start: 20110506
  7. METHOTREXATE [Concomitant]
     Dates: start: 20111217
  8. LEUCOVORIN CALCIUM [Concomitant]
     Indication: ADVERSE DRUG REACTION
  9. SITAGLIPTIN PHOSPHATE HYDRATE [Concomitant]
     Indication: PRODUCT USED FOR UNKNOWN INDICATION
     Dosage: DAILY DOSE: 50MG
     Route: 048
     Dates: start: 20110806, end: 20111222
  10. AMLODIPINE BESYLATE [Concomitant]
     Indication: PRODUCT USED FOR UNKNOWN INDICATION
     Dosage: DAILY DOSE: 7.5MG
     Route: 048
     Dates: start: 20110806, end: 20111110
  11. METHOTREXATE [Concomitant]
     Dates: start: 20100720, end: 20100923
  12. LANSOPRAZOLE [Concomitant]
     Indication: GASTRITIS PROPHYLAXIS
     Dosage: DAILY DOSE: 15MG
     Route: 048
     Dates: start: 20110806
  13. RALOXIFENE HYDROCHLORIDE [Concomitant]
     Indication: PRODUCT USED FOR UNKNOWN INDICATION
     Dosage: DAILY DOSE: 60MG
     Route: 048
     Dates: start: 20110806
  14. HUMIRA [Suspect]
     Indication: RHEUMATOID ARTHRITIS
     Route: 058
     Dates: start: 20100128, end: 20100720
  15. HUMIRA [Suspect]
     Dates: start: 20101124
  16. METHOTREXATE [Concomitant]
     Indication: RHEUMATOID ARTHRITIS
     Dates: start: 20090801
  17. METOPROLOL TARTRATE [Concomitant]
     Indication: PRODUCT USED FOR UNKNOWN INDICATION
     Dosage: DAILY DOSE: 40MG
     Route: 048
     Dates: start: 20110806
  18. HUMIRA [Suspect]
     Dates: start: 20110806, end: 20111013
  19. PRAVASTATIN SODIUM [Concomitant]
     Indication: PRODUCT USED FOR UNKNOWN INDICATION
     Dosage: DAILY DOSE: 20MG
     Route: 048
     Dates: start: 20110806
  20. DOXAZOSIN MESYLATE [Concomitant]
     Indication: PRODUCT USED FOR UNKNOWN INDICATION
     Dosage: DAILY DOSE: 1MG
     Route: 048
     Dates: start: 20110806
  21. TELMISARTAN [Concomitant]
     Indication: PRODUCT USED FOR UNKNOWN INDICATION
     Dosage: DAILY DOSE: 40MG
     Route: 048
     Dates: start: 20110806
  22. METFORMIN HYDROCHLORIDE [Concomitant]
     Indication: PRODUCT USED FOR UNKNOWN INDICATION
     Dosage: DAILY DOSE: 500MG
     Route: 048
     Dates: start: 20110806, end: 20110915
  23. SPIRONOLACTONE [Concomitant]
     Indication: PRODUCT USED FOR UNKNOWN INDICATION
     Dosage: DAILY DOSE: 50MG
     Route: 048
     Dates: start: 20111014
  24. METHOTREXATE [Concomitant]
     Dates: start: 20100924, end: 20110505
  25. AMINO ACID PREPARATIONS FOR HEPATIC CIRRHOSIS [Concomitant]
     Indication: PRODUCT USED FOR UNKNOWN INDICATION
     Dosage: DAILY DOSE: 12.45 GRAM
     Route: 048
     Dates: start: 20111028
  26. ALLOPURINOL [Concomitant]
     Indication: PRODUCT USED FOR UNKNOWN INDICATION
     Dosage: DAILY DOSE: 100MG
     Route: 048
     Dates: start: 20111221

REACTIONS (5)
  - UTERINE LEIOMYOMA [None]
  - PERITONEAL DISORDER [None]
  - ASCITES [None]
  - HEPATIC CIRRHOSIS [None]
  - HEPATIC STEATOSIS [None]
